FAERS Safety Report 19956275 (Version 1)
Quarter: 2021Q4

REPORT INFORMATION
  Report Type: Spontaneous
  Country: FR (occurrence: FR)
  Receive Date: 20211014
  Receipt Date: 20211014
  Transmission Date: 20220303
  Serious: Yes (Hospitalization)
  Sender: FDA-Public Use
  Company Number: FR-BRISTOL-MYERS SQUIBB COMPANY-BMS-2021-103542

PATIENT
  Age: 42 Year
  Sex: Male
  Weight: 106 kg

DRUGS (5)
  1. HYDREA [Suspect]
     Active Substance: HYDROXYUREA
     Indication: Hyperleukocytosis
     Dosage: 1 GRAM, QD
     Route: 048
     Dates: start: 20210829, end: 20210910
  2. DEXAMETHASONE [Suspect]
     Active Substance: DEXAMETHASONE
     Indication: Differentiation syndrome
     Dosage: 20 MILLIGRAM, QD
     Route: 042
     Dates: start: 20210829, end: 20210914
  3. NEFOPAM HYDROCHLORIDE [Suspect]
     Active Substance: NEFOPAM HYDROCHLORIDE
     Indication: Pain
     Dosage: 40 MILLIGRAM, QD
     Route: 042
     Dates: start: 20210826, end: 20210918
  4. VESANOID [Suspect]
     Active Substance: TRETINOIN
     Indication: Acute myeloid leukaemia
     Dosage: 90 MILLIGRAM, QD
     Route: 048
     Dates: start: 20210825, end: 20210916
  5. PALONOSETRON. [Suspect]
     Active Substance: PALONOSETRON HYDROCHLORIDE
     Indication: Nausea
     Dosage: 250 MILLIGRAM, 2 D (DAY)
     Route: 042
     Dates: start: 20210826, end: 20210913

REACTIONS (2)
  - Myositis [Recovered/Resolved]
  - Sacroiliitis [Recovered/Resolved]

NARRATIVE: CASE EVENT DATE: 20210902
